FAERS Safety Report 7635218-8 (Version None)
Quarter: 2011Q3

REPORT INFORMATION
  Report Type: 
  Country: None (occurrence: None)
  Receive Date: 20110718
  Receipt Date: 20110616
  Transmission Date: 20111222
  Serious: Yes (Other)
  Sender: FDA-Public Use
  Company Number: JPI-P-015828

PATIENT
  Age: 45 Year
  Sex: Female
  Weight: 63.5036 kg

DRUGS (12)
  1. LAMOTRIGINE [Concomitant]
  2. DULOXETINE HYDROCHLORIDE [Concomitant]
  3. XYREM [Suspect]
     Indication: FIBROMYALGIA
     Dosage: (   , 2 IN 1 D), ORAL   (3 GM 1ST DOSE/ 2 GM SECOND DOSE), ORAL
     Route: 048
     Dates: start: 20110328, end: 20110101
  4. XYREM [Suspect]
     Indication: INSOMNIA
     Dosage: (   , 2 IN 1 D), ORAL   (3 GM 1ST DOSE/ 2 GM SECOND DOSE), ORAL
     Route: 048
     Dates: start: 20110328, end: 20110101
  5. XYREM [Suspect]
     Indication: FIBROMYALGIA
     Dosage: (   , 2 IN 1 D), ORAL   (3 GM 1ST DOSE/ 2 GM SECOND DOSE), ORAL
     Route: 048
     Dates: start: 20110101, end: 20110501
  6. XYREM [Suspect]
     Indication: INSOMNIA
     Dosage: (   , 2 IN 1 D), ORAL   (3 GM 1ST DOSE/ 2 GM SECOND DOSE), ORAL
     Route: 048
     Dates: start: 20110101, end: 20110501
  7. METHADONE HCL [Concomitant]
  8. PREGABALIN [Concomitant]
  9. BACLOFEN [Concomitant]
  10. ESTRADIOL [Concomitant]
  11. BUPROPION HYDROCHLORIDE [Concomitant]
  12. NITROFURANTOIN [Concomitant]

REACTIONS (3)
  - SUICIDAL IDEATION [None]
  - MANIA [None]
  - HALLUCINATION [None]
